FAERS Safety Report 15170816 (Version 2)
Quarter: 2018Q3

REPORT INFORMATION
  Report Type: Spontaneous
  Country: JP (occurrence: JP)
  Receive Date: 20180720
  Receipt Date: 20180813
  Transmission Date: 20181010
  Serious: Yes (Hospitalization, Other)
  Sender: FDA-Public Use
  Company Number: JP-ELI_LILLY_AND_COMPANY-JP201807005411

PATIENT
  Sex: Male
  Weight: 58 kg

DRUGS (14)
  1. RIKKUNSHITO                        /08041001/ [Concomitant]
     Active Substance: HERBALS
     Dosage: 7.5 G, DAILY
  2. LUBIPROSTONE [Concomitant]
     Active Substance: LUBIPROSTONE
     Dosage: 24 UG, DAILY
  3. ESOMEPRAZOLE                       /01479302/ [Concomitant]
     Active Substance: ESOMEPRAZOLE
     Dosage: 20 MG, DAILY
  4. NIFEDIPINE. [Concomitant]
     Active Substance: NIFEDIPINE
     Dosage: 20 MG, DAILY
  5. ESCITALOPRAM [Concomitant]
     Active Substance: ESCITALOPRAM OXALATE
     Dosage: 10 MG, DAILY
  6. RAMELTEON [Concomitant]
     Active Substance: RAMELTEON
     Dosage: 8 MG, DAILY
  7. VILDAGLIPTIN [Concomitant]
     Active Substance: VILDAGLIPTIN
     Indication: TYPE 2 DIABETES MELLITUS
     Dosage: 100 MG, DAILY
     Route: 048
  8. BAKTAR [Concomitant]
     Active Substance: SULFAMETHOXAZOLE\TRIMETHOPRIM
     Dosage: 2 DF, DAILY
     Route: 048
  9. MAGNESIUM OXIDE. [Concomitant]
     Active Substance: MAGNESIUM OXIDE
     Dosage: 990 MG, DAILY
  10. SENNOSIDE                          /00571901/ [Concomitant]
     Active Substance: SENNOSIDES A AND B
     Dosage: 12 MG, DAILY
  11. MOSAPRIDE CITRATE [Concomitant]
     Active Substance: MOSAPRIDE CITRATE
     Dosage: 15 MG, DAILY
  12. DAIKENCHUTO [Concomitant]
     Active Substance: HERBALS
     Dosage: 7.5 G, DAILY
  13. INSULIN GLARGINE [Suspect]
     Active Substance: INSULIN GLARGINE
     Indication: TYPE 2 DIABETES MELLITUS
     Dosage: 16 IU, DAILY
     Route: 058
  14. TRIMEBUTINE MALEATE [Concomitant]
     Active Substance: TRIMEBUTINE MALEATE
     Dosage: 300 MG, DAILY

REACTIONS (3)
  - Weight decreased [Recovered/Resolved]
  - Gastric atony [Recovered/Resolved]
  - Diabetic amyotrophy [Recovered/Resolved]
